FAERS Safety Report 12971370 (Version 1)
Quarter: 2016Q4

REPORT INFORMATION
  Report Type: Spontaneous
  Country: US (occurrence: US)
  Receive Date: 20161123
  Receipt Date: 20161123
  Transmission Date: 20170207
  Serious: No
  Sender: FDA-Public Use
  Company Number: US-JAZZ-2016-US-019872

PATIENT
  Sex: Male

DRUGS (19)
  1. DIMENHYDRINATE. [Concomitant]
     Active Substance: DIMENHYDRINATE
  2. ESZOPICLONE. [Concomitant]
     Active Substance: ESZOPICLONE
  3. FLURAZEPAM [Concomitant]
     Active Substance: FLURAZEPAM\FLURAZEPAM HYDROCHLORIDE
  4. XYREM [Suspect]
     Active Substance: SODIUM OXYBATE
     Indication: INSOMNIA
     Dosage: 2.25 G, BID
     Route: 048
     Dates: start: 201511, end: 2015
  5. FISH OIL CONCENTRATE [Concomitant]
     Active Substance: FISH OIL
  6. ATORVASTATIN [Concomitant]
     Active Substance: ATORVASTATIN
  7. BELSOMRA [Concomitant]
     Active Substance: SUVOREXANT
  8. ROZEREM [Concomitant]
     Active Substance: RAMELTEON
  9. TEMAZEPAM. [Concomitant]
     Active Substance: TEMAZEPAM
  10. XYREM [Suspect]
     Active Substance: SODIUM OXYBATE
     Dosage: 4.5 G, BID
     Route: 048
     Dates: start: 201608
  11. MIRTAZAPINE. [Concomitant]
     Active Substance: MIRTAZAPINE
  12. ZOLPIDEM [Concomitant]
     Active Substance: ZOLPIDEM\ZOLPIDEM TARTRATE
  13. LUNESTA [Concomitant]
     Active Substance: ESZOPICLONE
  14. ASPIRIN                            /00002701/ [Concomitant]
     Active Substance: ASPIRIN
  15. AMITRIPTYLINE HCL [Concomitant]
     Active Substance: AMITRIPTYLINE
  16. MELATONIN                          /07129401/ [Concomitant]
  17. BENTYL [Concomitant]
     Active Substance: DICYCLOMINE HYDROCHLORIDE
  18. DOXYLAMINE SUCCINATE. [Concomitant]
     Active Substance: DOXYLAMINE SUCCINATE
  19. TRAZODONE [Concomitant]
     Active Substance: TRAZODONE HYDROCHLORIDE

REACTIONS (1)
  - Off label use [Unknown]
